FAERS Safety Report 16347394 (Version 5)
Quarter: 2019Q4

REPORT INFORMATION
  Report Type: Spontaneous
  Country: FR (occurrence: FR)
  Receive Date: 20190523
  Receipt Date: 20191030
  Transmission Date: 20200122
  Serious: Yes (Disabling, Other)
  Sender: FDA-Public Use
  Company Number: FR-SA-2019SA139485

PATIENT
  Age: 35 Year
  Sex: Female
  Weight: 72 kg

DRUGS (6)
  1. SMECTA [Concomitant]
     Active Substance: MONTMORILLONITE
     Indication: FAECES SOFT
  2. XANAX [Concomitant]
     Active Substance: ALPRAZOLAM
  3. PROTHIADEN [Concomitant]
     Active Substance: DOTHIEPIN HYDROCHLORIDE
  4. METEOSPASMYL [ALVERINE CITRATE;DL-METHIONINE] [Concomitant]
     Active Substance: ALVERINE CITRATE\RACEMETHIONINE
     Indication: IRRITABLE BOWEL SYNDROME
  5. AUBAGIO [Suspect]
     Active Substance: TERIFLUNOMIDE
     Indication: MULTIPLE SCLEROSIS
     Dosage: 14 MG, UNK
     Route: 048
     Dates: start: 201502, end: 20181006
  6. CLOMIPRAMINE [CLOMIPRAMINE HYDROCHLORIDE] [Concomitant]
     Active Substance: CLOMIPRAMINE HYDROCHLORIDE

REACTIONS (49)
  - Progressive multiple sclerosis [Unknown]
  - Fatigue [Recovered/Resolved]
  - Blood pressure decreased [Recovered/Resolved]
  - Pain [Unknown]
  - Hypoaesthesia [Unknown]
  - Confusional state [Unknown]
  - Burnout syndrome [Unknown]
  - Disturbance in attention [Unknown]
  - Cerebellar ataxia [Unknown]
  - Nausea [Recovered/Resolved]
  - Hypertension [Not Recovered/Not Resolved]
  - Rectal haemorrhage [Unknown]
  - Weight increased [Recovered/Resolved]
  - Migraine [Recovered/Resolved]
  - Tendonitis [Unknown]
  - Fibromyalgia [Unknown]
  - Balance disorder [Unknown]
  - Memory impairment [Unknown]
  - Aphasia [Unknown]
  - Loss of consciousness [Unknown]
  - Dysstasia [Recovered/Resolved]
  - Hyperhidrosis [Recovered/Resolved]
  - Alopecia [Recovering/Resolving]
  - Arthralgia [Unknown]
  - Haematochezia [Recovered/Resolved]
  - Dizziness [Recovered/Resolved]
  - Neutrophil count increased [Recovered/Resolved]
  - Asthenia [Unknown]
  - Joint effusion [Unknown]
  - Fatigue [Unknown]
  - Diarrhoea [Recovered/Resolved]
  - Malaise [Recovered/Resolved]
  - Occipital neuralgia [Unknown]
  - Oral herpes [Recovered/Resolved]
  - Abdominal pain upper [Recovered/Resolved]
  - Abdominal pain [Recovered/Resolved]
  - Disability [Not Recovered/Not Resolved]
  - Haemorrhoids [Unknown]
  - Anxiety [Recovered/Resolved]
  - Hunger [Recovered/Resolved]
  - Parotid gland enlargement [Unknown]
  - Arthralgia [Unknown]
  - Palpitations [Recovered/Resolved]
  - Loss of personal independence in daily activities [Unknown]
  - Feeling drunk [Recovered/Resolved]
  - Cognitive disorder [Recovered/Resolved]
  - Sleep disorder [Recovered/Resolved]
  - Vomiting [Unknown]
  - Condition aggravated [Unknown]

NARRATIVE: CASE EVENT DATE: 201507
